FAERS Safety Report 15324812 (Version 2)
Quarter: 2018Q4

REPORT INFORMATION
  Report Type: Report from Study
  Country: DE (occurrence: DE)
  Receive Date: 20180828
  Receipt Date: 20181101
  Transmission Date: 20190204
  Serious: Yes (Disabling)
  Sender: FDA-Public Use
  Company Number: DE-ROCHE-2076193

PATIENT
  Age: 64 Year
  Sex: Male

DRUGS (7)
  1. ARCOXIA [Concomitant]
     Active Substance: ETORICOXIB
  2. PREDNISOLON [Concomitant]
     Active Substance: PREDNISOLONE
  3. TOCILIZUMAB. [Suspect]
     Active Substance: TOCILIZUMAB
     Indication: RHEUMATOID ARTHRITIS
     Route: 058
     Dates: start: 201708, end: 201709
  4. METHOTREXATE. [Suspect]
     Active Substance: METHOTREXATE
     Indication: RHEUMATOID ARTHRITIS
     Route: 065
     Dates: end: 201712
  5. FOLIC ACID. [Concomitant]
     Active Substance: FOLIC ACID
  6. ENBREL [Suspect]
     Active Substance: ETANERCEPT
     Indication: RHEUMATOID ARTHRITIS
     Route: 065
     Dates: start: 201509, end: 201707
  7. XELJANZ [Concomitant]
     Active Substance: TOFACITINIB CITRATE
     Indication: RHEUMATOID ARTHRITIS
     Route: 065
     Dates: start: 20180222

REACTIONS (7)
  - Arthritis bacterial [Recovered/Resolved with Sequelae]
  - Mucosal ulceration [Unknown]
  - Bronchitis [Unknown]
  - Joint stiffness [Unknown]
  - Lipids increased [Unknown]
  - Toothache [Unknown]
  - Pain in jaw [Unknown]

NARRATIVE: CASE EVENT DATE: 20170914
